FAERS Safety Report 5286768-3 (Version None)
Quarter: 2007Q2

REPORT INFORMATION
  Report Type: 
  Country: None (occurrence: None)
  Receive Date: 20070404
  Receipt Date: 20070327
  Transmission Date: 20071010
  Serious: Yes (Hospitalization, Other)
  Sender: FDA-Public Use
  Company Number: TH-BRISTOL-MYERS SQUIBB COMPANY-13652326

PATIENT
  Age: 57 Year
  Sex: Female
  Weight: 53 kg

DRUGS (7)
  1. IFOSFAMIDE [Suspect]
     Indication: CERVIX CARCINOMA
     Dates: start: 20070108
  2. CISPLATIN [Suspect]
     Indication: SQUAMOUS CELL CARCINOMA OF THE CERVIX
  3. SODIUM CHLORIDE [Concomitant]
  4. POTASSIUM CHLORIDE [Concomitant]
  5. MAGNESIUM SULFATE [Concomitant]
  6. MESNA [Concomitant]
  7. DEXAMETHASONE [Concomitant]

REACTIONS (4)
  - DEHYDRATION [None]
  - FEBRILE NEUTROPENIA [None]
  - HYPOKALAEMIA [None]
  - THROMBOCYTOPENIA [None]
